FAERS Safety Report 13663268 (Version 1)
Quarter: 2017Q2

REPORT INFORMATION
  Report Type: Spontaneous
  Country: US (occurrence: US)
  Receive Date: 20170617
  Receipt Date: 20170617
  Transmission Date: 20170830
  Serious: Yes (Hospitalization, Other)
  Sender: FDA-Public Use
  Company Number: None

PATIENT
  Age: 59 Year
  Sex: Female
  Weight: 76.5 kg

DRUGS (1)
  1. ELIQUIS [Suspect]
     Active Substance: APIXABAN
     Indication: PULMONARY EMBOLISM
     Dosage: ?          QUANTITY:1 TABLET(S);?
     Route: 048
     Dates: start: 20170410, end: 20170611

REACTIONS (12)
  - Alopecia [None]
  - Eye swelling [None]
  - Vision blurred [None]
  - Asthenia [None]
  - Epistaxis [None]
  - Dyspepsia [None]
  - Contusion [None]
  - Cerebrospinal fluid leakage [None]
  - Nausea [None]
  - Ocular hyperaemia [None]
  - Diplopia [None]
  - Fatigue [None]

NARRATIVE: CASE EVENT DATE: 20170510
